FAERS Safety Report 11181456 (Version 1)
Quarter: 2015Q2

REPORT INFORMATION
  Report Type: Spontaneous
  Country: US (occurrence: US)
  Receive Date: 20150611
  Receipt Date: 20150611
  Transmission Date: 20150821
  Serious: Yes (Other)
  Sender: FDA-Public Use
  Company Number: US-ASTELLAS-2015US012273

PATIENT
  Sex: Male

DRUGS (1)
  1. XTANDI [Suspect]
     Active Substance: ENZALUTAMIDE
     Indication: PROSTATE CANCER METASTATIC
     Dosage: 160 MG (FOUR CAPSULES OF 40MG), ONCE DAILY
     Route: 048

REACTIONS (3)
  - Drug ineffective [Unknown]
  - Seizure [Unknown]
  - Prostatic specific antigen increased [Unknown]
